FAERS Safety Report 4897646-3 (Version None)
Quarter: 2006Q1

REPORT INFORMATION
  Report Type: 
  Country: None (occurrence: None)
  Receive Date: 20060201
  Receipt Date: 20060120
  Transmission Date: 20060701
  Serious: Yes (Hospitalization)
  Sender: FDA-Public Use
  Company Number: CH-BRISTOL-MYERS SQUIBB COMPANY-13260419

PATIENT
  Age: 63 Year
  Sex: Female
  Weight: 64 kg

DRUGS (7)
  1. AMPHO-MORONAL LOZENGE [Suspect]
     Indication: CANDIDIASIS
     Route: 002
     Dates: start: 20051109, end: 20051118
  2. NOROXIN [Suspect]
     Indication: URINARY TRACT INFECTION
     Route: 048
     Dates: start: 20051116, end: 20051117
  3. ZESTRIL [Concomitant]
  4. SPIRICORT [Concomitant]
  5. ASPIRIN [Concomitant]
  6. NEXIUM [Concomitant]
  7. NEBILET [Concomitant]

REACTIONS (1)
  - LEUKOPENIA [None]
